FAERS Safety Report 6902538-1 (Version None)
Quarter: 2010Q3

REPORT INFORMATION
  Report Type: 
  Country: None (occurrence: None)
  Receive Date: 20100803
  Receipt Date: 20100720
  Transmission Date: 20110219
  Serious: Yes (Hospitalization)
  Sender: FDA-Public Use
  Company Number: US-AMGEN-TCS420124

PATIENT
  Sex: Male

DRUGS (7)
  1. ENBREL [Suspect]
     Indication: PSORIATIC ARTHROPATHY
     Route: 058
     Dates: start: 20051101, end: 20100518
  2. ENBREL [Suspect]
     Indication: PSORIASIS
  3. ZOCOR [Concomitant]
  4. ZYRTEC [Concomitant]
  5. ASPIRIN [Concomitant]
  6. VITAMIN TAB [Concomitant]
  7. VOLTAREN [Concomitant]

REACTIONS (8)
  - AREFLEXIA [None]
  - HYPOREFLEXIA [None]
  - INFECTED CYST [None]
  - MUSCULOSKELETAL STIFFNESS [None]
  - MYALGIA [None]
  - PSORIASIS [None]
  - SYNOVIAL CYST [None]
  - TRANSIENT GLOBAL AMNESIA [None]
